FAERS Safety Report 4658820-4 (Version None)
Quarter: 2005Q2

REPORT INFORMATION
  Report Type: 
  Country: None (occurrence: None)
  Receive Date: 20050511
  Receipt Date: 20050429
  Transmission Date: 20051028
  Serious: Yes (Hospitalization, Other)
  Sender: FDA-Public Use
  Company Number: US-GLAXOSMITHKLINE-A0556421A

PATIENT
  Age: 56 Year
  Sex: Female
  Weight: 96.8 kg

DRUGS (5)
  1. GAVISCON [Suspect]
     Route: 048
  2. HIGH BLOOD PRESSURE PILL [Concomitant]
  3. WATER PILL [Concomitant]
  4. LIPITOR [Concomitant]
     Indication: BLOOD CHOLESTEROL INCREASED
  5. GARLIC WITH MULTIVITAMINS [Concomitant]
     Indication: DRUG USE FOR UNKNOWN INDICATION

REACTIONS (2)
  - CHEST PAIN [None]
  - CORONARY ARTERY STENOSIS [None]
